FAERS Safety Report 23564630 (Version 2)
Quarter: 2024Q1

REPORT INFORMATION
  Report Type: Spontaneous
  Country: US (occurrence: US)
  Receive Date: 20240226
  Receipt Date: 20240229
  Transmission Date: 20240410
  Serious: Yes (Hospitalization, Other)
  Sender: FDA-Public Use
  Company Number: US-BRISTOL-MYERS SQUIBB COMPANY-2024-028805

PATIENT
  Age: 63 Year
  Sex: Male
  Weight: 97.07 kg

DRUGS (2)
  1. REVLIMID [Suspect]
     Active Substance: LENALIDOMIDE
     Indication: Plasma cell myeloma
     Route: 048
     Dates: start: 20220506
  2. REVLIMID [Suspect]
     Active Substance: LENALIDOMIDE
     Dosage: 1-21 Q 28 DAYS
     Route: 048

REACTIONS (2)
  - White blood cell count decreased [Recovered/Resolved]
  - Sepsis [Recovered/Resolved]
